FAERS Safety Report 8372772-5 (Version None)
Quarter: 2012Q2

REPORT INFORMATION
  Report Type: 
  Country: None (occurrence: None)
  Receive Date: 20120521
  Receipt Date: 20120515
  Transmission Date: 20120825
  Serious: Yes (Hospitalization)
  Sender: FDA-Public Use
  Company Number: IT-PFIZER INC-2012119748

PATIENT
  Sex: Male

DRUGS (1)
  1. METHYLPEDNISOLONE SODIUM SUCCINATE [Suspect]
     Dosage: UNK

REACTIONS (2)
  - PNEUMONITIS [None]
  - FEBRILE NEUTROPENIA [None]
